FAERS Safety Report 11661867 (Version 1)
Quarter: 2015Q4

REPORT INFORMATION
  Report Type: Spontaneous
  Country: US (occurrence: US)
  Receive Date: 20151026
  Receipt Date: 20151026
  Transmission Date: 20160304
  Serious: Yes (Disabling, Other)
  Sender: FDA-Public Use
  Company Number: US-BAYER-2015-446564

PATIENT
  Sex: Female

DRUGS (3)
  1. DICLOFENAC [Concomitant]
     Active Substance: DICLOFENAC
     Indication: PAIN
     Dosage: UNK
  2. CLONAZEPAM. [Suspect]
     Active Substance: CLONAZEPAM
     Dosage: UNK
  3. CIPRO [Suspect]
     Active Substance: CIPROFLOXACIN HYDROCHLORIDE
     Indication: URINARY TRACT INFECTION
     Dosage: UNK
     Route: 048
     Dates: start: 20120404

REACTIONS (25)
  - Mutagenic effect [None]
  - Coccydynia [None]
  - Impaired work ability [None]
  - Gait disturbance [None]
  - Mania [Recovered/Resolved]
  - Arthralgia [None]
  - Joint crepitation [None]
  - Allodynia [None]
  - Psychotic disorder [Recovered/Resolved]
  - Hepatic function abnormal [None]
  - Pain in extremity [None]
  - Limb discomfort [None]
  - Agitation [None]
  - Renal disorder [None]
  - Autoimmune thyroiditis [None]
  - Tendon pain [None]
  - Burning sensation [None]
  - Nerve injury [None]
  - Fatigue [None]
  - Epstein-Barr virus test positive [None]
  - Asthenia [None]
  - Neuropathy peripheral [None]
  - Back pain [None]
  - Pruritus generalised [None]
  - Pain in extremity [None]

NARRATIVE: CASE EVENT DATE: 2013
